FAERS Safety Report 9918113 (Version 1)
Quarter: 2014Q1

REPORT INFORMATION
  Report Type: Spontaneous
  Country: US (occurrence: US)
  Receive Date: 20140223
  Receipt Date: 20140223
  Transmission Date: 20141002
  Serious: Yes (Other)
  Sender: FDA-Public Use
  Company Number: US-ALLERGAN-1306056US

PATIENT
  Age: 23 Year
  Sex: Female

DRUGS (2)
  1. TAZORAC CREAM 0.05% [Suspect]
     Indication: PRODUCT USED FOR UNKNOWN INDICATION
     Route: 061
  2. ANTIHYPERTENSIVE MEDICATION NOS [Concomitant]
     Indication: HYPERTENSION
     Dosage: UNK, PO
     Route: 048

REACTIONS (1)
  - Maternal exposure during pregnancy [Unknown]
